FAERS Safety Report 15283015 (Version 1)
Quarter: 2018Q3

REPORT INFORMATION
  Report Type: Spontaneous
  Country: DE (occurrence: DE)
  Receive Date: 20180816
  Receipt Date: 20180816
  Transmission Date: 20181010
  Serious: Yes (Other)
  Sender: FDA-Public Use
  Company Number: DE-TEVA-2018-DE-942768

PATIENT
  Sex: Male

DRUGS (1)
  1. HYDROCHLOROTHIAZID/VALSARTAN [Suspect]
     Active Substance: HYDROCHLOROTHIAZIDE\VALSARTAN
     Indication: BLOOD PRESSURE ABNORMAL
     Dosage: ANWENDUNG SEIT KNAPP 2 JAHREN
     Route: 065

REACTIONS (2)
  - Product impurity [Unknown]
  - Oesophageal carcinoma [Unknown]
